FAERS Safety Report 7091645-1 (Version None)
Quarter: 2010Q4

REPORT INFORMATION
  Report Type: 
  Country: None (occurrence: None)
  Receive Date: 20101109
  Receipt Date: 20081104
  Transmission Date: 20110411
  Serious: No
  Sender: FDA-Public Use
  Company Number: US-KINGPHARMUSA00001-K200801268

PATIENT
  Sex: Female
  Weight: 56.689 kg

DRUGS (1)
  1. EPIPEN [Suspect]
     Indication: ACCIDENTAL EXPOSURE
     Dosage: SINGLE
     Dates: start: 20081104, end: 20081104

REACTIONS (7)
  - ACCIDENTAL EXPOSURE [None]
  - EXPIRED DRUG ADMINISTERED [None]
  - INJECTION SITE ERYTHEMA [None]
  - INJECTION SITE PAIN [None]
  - INJECTION SITE PALLOR [None]
  - INJECTION SITE SWELLING [None]
  - SKELETAL INJURY [None]
